FAERS Safety Report 19954318 (Version 1)
Quarter: 2021Q4

REPORT INFORMATION
  Report Type: Spontaneous
  Country: NL (occurrence: NL)
  Receive Date: 20211013
  Receipt Date: 20211013
  Transmission Date: 20220303
  Serious: Yes (Disabling)
  Sender: FDA-Public Use
  Company Number: None

PATIENT
  Sex: Male
  Weight: 62 kg

DRUGS (3)
  1. PAROXETINE [Suspect]
     Active Substance: PAROXETINE
     Indication: Anxiety
     Dosage: 40 MILLIGRAM, QD (FIRST 20MG TABLET, THEN 40MG TABLET. THEN REDUCE)
     Dates: start: 2019
  2. PAROXETINE [Suspect]
     Active Substance: PAROXETINE
     Dosage: 1 DOSAGE FORM (FIRST 20MG TABLET, THEN 40MG TABLET. THEN REDUCE)
  3. PAROXETINE [Suspect]
     Active Substance: PAROXETINE
     Dosage: 20 MILLIGRAM, QD (FIRST 20MG TABLET, THEN 40MG TABLET. THEN REDUCE)
     Dates: start: 201901

REACTIONS (6)
  - Paranoia [Recovering/Resolving]
  - Aggression [Recovering/Resolving]
  - Insomnia [Recovered/Resolved]
  - Depressed level of consciousness [Recovering/Resolving]
  - Listless [Recovering/Resolving]
  - Weight increased [Recovered/Resolved]
